FAERS Safety Report 10214319 (Version 2)
Quarter: 2014Q2

REPORT INFORMATION
  Report Type: Report from Study
  Country: FR (occurrence: FR)
  Receive Date: 20140603
  Receipt Date: 20140603
  Transmission Date: 20141212
  Serious: Yes (Hospitalization, Other)
  Sender: FDA-Public Use
  Company Number: FR-JNJFOC-EMADSS2002006747

PATIENT
  Age: 69 Year
  Sex: Female
  Weight: 51 kg

DRUGS (9)
  1. REMICADE [Suspect]
     Indication: SJOGREN^S SYNDROME
     Dates: start: 20020806, end: 20020806
  2. REMICADE [Suspect]
     Indication: SJOGREN^S SYNDROME
     Dates: start: 20020903, end: 20020903
  3. REMICADE [Suspect]
     Indication: SJOGREN^S SYNDROME
     Dates: start: 20021030, end: 20021030
  4. REMICADE [Suspect]
     Indication: SJOGREN^S SYNDROME
     Dates: start: 20020723, end: 20020723
  5. PLACEBO [Suspect]
     Indication: SJOGREN^S SYNDROME
     Route: 041
     Dates: start: 20020110, end: 20020110
  6. PLACEBO [Suspect]
     Indication: SJOGREN^S SYNDROME
     Route: 041
     Dates: start: 20020806, end: 20020806
  7. PLACEBO [Suspect]
     Indication: SJOGREN^S SYNDROME
     Route: 041
     Dates: start: 20020903, end: 20020903
  8. PLACEBO [Suspect]
     Indication: SJOGREN^S SYNDROME
     Route: 041
     Dates: start: 20020723, end: 20020723
  9. METHOTREXATE [Suspect]
     Indication: SJOGREN^S SYNDROME
     Route: 065
     Dates: start: 20020626

REACTIONS (2)
  - Breast cancer [Not Recovered/Not Resolved]
  - Tuberculosis [Recovering/Resolving]
